FAERS Safety Report 13702167 (Version 2)
Quarter: 2017Q3

REPORT INFORMATION
  Report Type: Spontaneous
  Country: AT (occurrence: AT)
  Receive Date: 20170629
  Receipt Date: 20170919
  Transmission Date: 20171127
  Serious: Yes (Life-Threatening, Hospitalization, Other)
  Sender: FDA-Public Use
  Company Number: AT-TEVA-780719ISR

PATIENT
  Age: 44 Year
  Sex: Female
  Weight: 67 kg

DRUGS (1)
  1. CIPROFLOXACIN. [Suspect]
     Active Substance: CIPROFLOXACIN
     Indication: CYSTITIS
     Dosage: 1000 MILLIGRAM DAILY; 13 TABLETS WERE TAKEN
     Dates: start: 20161226, end: 20170102

REACTIONS (22)
  - Tinnitus [Not Recovered/Not Resolved]
  - Chills [Not Recovered/Not Resolved]
  - Post-traumatic stress disorder [Recovered/Resolved]
  - Depression [Not Recovered/Not Resolved]
  - Vertigo [Not Recovered/Not Resolved]
  - Adverse drug reaction [Not Recovered/Not Resolved]
  - Pain [Not Recovered/Not Resolved]
  - Suicidal ideation [Not Recovered/Not Resolved]
  - Ear pain [Recovered/Resolved]
  - Nausea [Not Recovered/Not Resolved]
  - Panic attack [Not Recovered/Not Resolved]
  - Visual impairment [Recovering/Resolving]
  - Headache [Not Recovered/Not Resolved]
  - Head discomfort [Not Recovered/Not Resolved]
  - Suicidal ideation [Not Recovered/Not Resolved]
  - Impaired quality of life [Not Recovered/Not Resolved]
  - Suicide attempt [Not Recovered/Not Resolved]
  - Overdose [Unknown]
  - Diarrhoea [Not Recovered/Not Resolved]
  - Gastrointestinal disorder [Not Recovered/Not Resolved]
  - Nervousness [Not Recovered/Not Resolved]
  - Tachycardia [Not Recovered/Not Resolved]

NARRATIVE: CASE EVENT DATE: 201612
